FAERS Safety Report 14377938 (Version 2)
Quarter: 2018Q1

REPORT INFORMATION
  Report Type: Spontaneous
  Country: BR (occurrence: BR)
  Receive Date: 20180111
  Receipt Date: 20180115
  Transmission Date: 20180509
  Serious: Yes (Other)
  Sender: FDA-Public Use
  Company Number: BR-PFIZER INC-2018009173

PATIENT
  Sex: Male

DRUGS (4)
  1. FRONTAL XR [Suspect]
     Active Substance: ALPRAZOLAM
     Dosage: UNK
  2. PREBICTAL [Concomitant]
     Active Substance: PREGABALIN
     Dosage: UNK
  3. FRONTAL [Suspect]
     Active Substance: ALPRAZOLAM
     Indication: ANXIETY
     Dosage: UNK
  4. FRONTAL [Suspect]
     Active Substance: ALPRAZOLAM
     Indication: DEPRESSION

REACTIONS (10)
  - Weight increased [Unknown]
  - Drug dependence [Unknown]
  - Panic reaction [Unknown]
  - Insomnia [Unknown]
  - Fibromyalgia [Unknown]
  - Muscle tightness [Unknown]
  - Drug dose omission [Unknown]
  - Blood pressure increased [Unknown]
  - Memory impairment [Unknown]
  - Drug ineffective [Unknown]
